FAERS Safety Report 4923608-3 (Version None)
Quarter: 2006Q1

REPORT INFORMATION
  Report Type: 
  Country: None (occurrence: None)
  Receive Date: 20060227
  Receipt Date: 20060216
  Transmission Date: 20060701
  Serious: Yes (Death, Other)
  Sender: FDA-Public Use
  Company Number: US-JNJFOC-20060105029

PATIENT
  Sex: Male
  Weight: 86.64 kg

DRUGS (5)
  1. REMICADE [Suspect]
     Indication: RHEUMATOID ARTHRITIS
     Dosage: PATIENT RECIEVED TOTAL OF 32 INFUSIONS
     Route: 042
  2. METHOTREXATE [Concomitant]
  3. PREDNISONE [Concomitant]
  4. NSAIDS [Concomitant]
  5. CORTISONE ACETATE TAB [Concomitant]
     Route: 050

REACTIONS (1)
  - DIFFUSE LARGE B-CELL LYMPHOMA [None]
